FAERS Safety Report 18489233 (Version 1)
Quarter: 2020Q4

REPORT INFORMATION
  Report Type: Spontaneous
  Country: CA (occurrence: CA)
  Receive Date: 20201111
  Receipt Date: 20201111
  Transmission Date: 20210114
  Serious: Yes (Other)
  Sender: FDA-Public Use
  Company Number: CA-JNJFOC-20201105980

PATIENT
  Age: 67 Year
  Sex: Male

DRUGS (1)
  1. INFLIXIMAB, RECOMBINANT [Suspect]
     Active Substance: INFLIXIMAB
     Indication: COLITIS ULCERATIVE
     Route: 042

REACTIONS (7)
  - Myalgia [Unknown]
  - Rectal haemorrhage [Unknown]
  - Musculoskeletal stiffness [Unknown]
  - Off label use [Unknown]
  - Therapeutic response shortened [Unknown]
  - Back pain [Unknown]
  - Inappropriate schedule of product administration [Unknown]
